FAERS Safety Report 5904493-X (Version None)
Quarter: 2008Q3

REPORT INFORMATION
  Report Type: 
  Country: None (occurrence: None)
  Receive Date: 20080930
  Receipt Date: 20080930
  Transmission Date: 20090109
  Serious: Yes (Hospitalization)
  Sender: FDA-Public Use
  Company Number: None

PATIENT
  Age: 84 Year
  Sex: Male

DRUGS (1)
  1. HYDROXYUREA [Suspect]
     Dosage: 1000 MG EVERY DAY PO
     Route: 048
     Dates: start: 20080722, end: 20080729

REACTIONS (5)
  - ANIMAL BITE [None]
  - CHILLS [None]
  - DYSPNOEA [None]
  - HYPOTENSION [None]
  - PYREXIA [None]
